FAERS Safety Report 8160326-5 (Version None)
Quarter: 2012Q1

REPORT INFORMATION
  Report Type: 
  Country: None (occurrence: None)
  Receive Date: 20120223
  Receipt Date: 20120221
  Transmission Date: 20120608
  Serious: Yes (Death, Other)
  Sender: FDA-Public Use
  Company Number: CA-ABBOTT-12P-028-0901143-00

PATIENT
  Sex: Female
  Weight: 45.4 kg

DRUGS (1)
  1. HUMIRA [Suspect]
     Indication: CROHN'S DISEASE
     Route: 058
     Dates: start: 20090423

REACTIONS (7)
  - INTRACRANIAL PRESSURE INCREASED [None]
  - CROHN'S DISEASE [None]
  - VOMITING [None]
  - NAUSEA [None]
  - HEADACHE [None]
  - INTRACRANIAL ANEURYSM [None]
  - CEREBRAL HAEMORRHAGE [None]
